FAERS Safety Report 7035252-5 (Version None)
Quarter: 2010Q4

REPORT INFORMATION
  Report Type: 
  Country: None (occurrence: None)
  Receive Date: 20101008
  Receipt Date: 20101005
  Transmission Date: 20110411
  Serious: Yes (Death, Hospitalization)
  Sender: FDA-Public Use
  Company Number: A0764847A

PATIENT
  Age: 77 Year
  Sex: Male
  Weight: 106.8 kg

DRUGS (4)
  1. AVANDIA [Suspect]
     Dosage: 4MG TWICE PER DAY
     Route: 048
     Dates: end: 20061205
  2. DIABETA [Concomitant]
     Dates: start: 20050801, end: 20051001
  3. GLUCOTROL [Concomitant]
     Dates: start: 20040101, end: 20050801
  4. GLUCOTROL XL [Concomitant]
     Dates: start: 20020501, end: 20041201

REACTIONS (4)
  - CARDIAC FAILURE CONGESTIVE [None]
  - DEATH [None]
  - LIVER DISORDER [None]
  - MYOCARDIAL INFARCTION [None]
